FAERS Safety Report 7084752-0 (Version None)
Quarter: 2010Q4

REPORT INFORMATION
  Report Type: 
  Country: None (occurrence: None)
  Receive Date: 20101104
  Receipt Date: 20101025
  Transmission Date: 20110411
  Serious: Yes (Other)
  Sender: FDA-Public Use
  Company Number: US-AMGEN-USASP2010001309

PATIENT

DRUGS (3)
  1. NPLATE [Suspect]
     Indication: IDIOPATHIC THROMBOCYTOPENIC PURPURA
     Dates: start: 20090525, end: 20100706
  2. CORTICOSTEROIDS [Concomitant]
  3. IMMU-G [Concomitant]
     Dosage: UNK
     Dates: start: 20090514

REACTIONS (2)
  - EMBOLISM ARTERIAL [None]
  - THROMBOSIS [None]
